FAERS Safety Report 8319740-7 (Version None)
Quarter: 2012Q2

REPORT INFORMATION
  Report Type: 
  Country: None (occurrence: None)
  Receive Date: 20120427
  Receipt Date: 20120416
  Transmission Date: 20120825
  Serious: Yes (Hospitalization)
  Sender: FDA-Public Use
  Company Number: FR-BRISTOL-MYERS SQUIBB COMPANY-16547556

PATIENT
  Age: 64 Year
  Sex: Male

DRUGS (13)
  1. LEVOTHYROXINE SODIUM [Suspect]
     Dosage: 200 MCG TABS
     Route: 048
     Dates: start: 20081001
  2. ALLOPURINOL [Suspect]
     Dosage: 200MG TABS
     Route: 048
     Dates: start: 20081001, end: 20120323
  3. ENALAPRIL MALEATE [Suspect]
     Indication: HYPERTENSION
     Dosage: 20MG ORAL LYOPHILISATE
     Route: 048
     Dates: start: 20081001
  4. INFLUVAC [Suspect]
     Indication: INFLUENZA IMMUNISATION
     Dosage: 0.0027 DF
     Route: 030
     Dates: start: 20111101
  5. OMEPRAZOLE [Suspect]
     Indication: GASTRITIS
     Route: 048
     Dates: start: 20081001
  6. GLUCOPHAGE [Suspect]
     Route: 048
     Dates: start: 20081001
  7. LASIX [Suspect]
     Indication: CARDIAC FAILURE
     Dosage: 40MG TABS 1DF TO SEVERAL DF DEPENDING ON RESPIRATORY CONDITIONS
     Route: 048
     Dates: start: 20101001
  8. DIAMICRON [Suspect]
     Indication: TYPE 2 DIABETES MELLITUS
     Dosage: 1DF:4 DOSAGE FORM 30MG MODIFIED RELEASE TABLET
     Route: 048
     Dates: start: 20081001
  9. SPIRONOLACTONE [Suspect]
     Indication: HYPERTENSION
     Dosage: FILM COATED TABS
     Route: 048
     Dates: start: 20081001
  10. TRANDATE [Suspect]
     Indication: HYPERTENSION
     Dosage: 200MG FILM COATED TABS
     Route: 048
     Dates: start: 20081001
  11. LERCANIDIPINE [Suspect]
     Indication: HYPERTENSION
     Dosage: 10MG FILM COATED TABS
     Route: 048
     Dates: start: 20081001
  12. DIGOXIN [Suspect]
     Route: 048
     Dates: start: 20081001
  13. SINTROM [Suspect]
     Indication: HYPERTENSION
     Dosage: 1DF:1.25 DF AND 1DF ALTERNATELY 4MG TABS
     Route: 048
     Dates: start: 20081001

REACTIONS (1)
  - LEUKOCYTOCLASTIC VASCULITIS [None]
